FAERS Safety Report 7307967-2 (Version None)
Quarter: 2011Q1

REPORT INFORMATION
  Report Type: 
  Country: None (occurrence: None)
  Receive Date: 20110223
  Receipt Date: 20110214
  Transmission Date: 20110831
  Serious: Yes (Death, Hospitalization, Other)
  Sender: FDA-Public Use
  Company Number: IE-BAYER-201033306GPV

PATIENT
  Sex: Male

DRUGS (2)
  1. NEXAVAR [Suspect]
     Dosage: 200 MG, QD
     Dates: start: 20100523
  2. NEXAVAR [Suspect]
     Indication: HEPATIC NEOPLASM MALIGNANT
     Dosage: UNK
     Dates: start: 20100523

REACTIONS (5)
  - PLEURAL EFFUSION [None]
  - EMPYEMA [None]
  - DEATH [None]
  - DYSPNOEA [None]
  - ABDOMINAL PAIN [None]
